FAERS Safety Report 4696374-7 (Version None)
Quarter: 2005Q2

REPORT INFORMATION
  Report Type: 
  Country: None (occurrence: None)
  Receive Date: 20050615
  Receipt Date: 20050124
  Transmission Date: 20051028
  Serious: Yes (Hospitalization)
  Sender: FDA-Public Use
  Company Number: WAES 0501USA03548

PATIENT
  Age: 84 Year
  Sex: Male
  Weight: 63.5036 kg

DRUGS (9)
  1. COZAAR [Suspect]
     Indication: HYPERTENSION
     Dosage: 100 MG/DAILY/PO
     Route: 048
     Dates: start: 20040221, end: 20050204
  2. ADVIL [Concomitant]
  3. FLOMAX [Concomitant]
  4. HYTRIN [Concomitant]
  5. LEVOXYL [Concomitant]
  6. PRILOSEC [Concomitant]
  7. ALLOPURINOL [Concomitant]
  8. VITAMINS (UNSPECIFIED) [Concomitant]
  9. PROCRIT [Concomitant]

REACTIONS (7)
  - ANOREXIA [None]
  - ASTHENIA [None]
  - BLOOD CREATININE INCREASED [None]
  - BLOOD POTASSIUM INCREASED [None]
  - BLOOD PRESSURE DECREASED [None]
  - BLOOD UREA INCREASED [None]
  - RASH [None]
